FAERS Safety Report 7940949-6 (Version None)
Quarter: 2011Q4

REPORT INFORMATION
  Report Type: 
  Country: None (occurrence: None)
  Receive Date: 20111128
  Receipt Date: 20111117
  Transmission Date: 20120403
  Serious: Yes (Hospitalization)
  Sender: FDA-Public Use
  Company Number: PHHY2011US101905

PATIENT
  Age: 14 Month
  Sex: Male

DRUGS (1)
  1. DONEPEZIL HCL [Suspect]
     Dosage: 10 MG, UNK
     Route: 048

REACTIONS (13)
  - MENTAL DISORDER [None]
  - VOMITING [None]
  - ACCIDENTAL DRUG INTAKE BY CHILD [None]
  - SOMNOLENCE [None]
  - DROOLING [None]
  - DIARRHOEA [None]
  - AGITATION [None]
  - RESPIRATORY RATE INCREASED [None]
  - BRADYCARDIA [None]
  - HEART RATE INCREASED [None]
  - NODAL RHYTHM [None]
  - BLOOD PRESSURE DECREASED [None]
  - ACCIDENTAL EXPOSURE [None]
